APPROVED DRUG PRODUCT: VERAPAMIL HYDROCHLORIDE
Active Ingredient: VERAPAMIL HYDROCHLORIDE
Strength: 5MG/2ML (2.5MG/ML)
Dosage Form/Route: SOLUTION;INTRAVENOUS
Application: A075136 | Product #001 | TE Code: AP
Applicant: HOSPIRA INC
Approved: Oct 20, 1998 | RLD: No | RS: Yes | Type: RX